FAERS Safety Report 15517222 (Version 1)
Quarter: 2018Q4

REPORT INFORMATION
  Report Type: Spontaneous
  Country: IT (occurrence: IT)
  Receive Date: 20181017
  Receipt Date: 20181017
  Transmission Date: 20190205
  Serious: Yes (Hospitalization, Other)
  Sender: FDA-Public Use
  Company Number: IT-009507513-1810ITA001936

PATIENT
  Age: 77 Year
  Sex: Female

DRUGS (5)
  1. DIAMICRON [Concomitant]
     Active Substance: GLICLAZIDE
     Dosage: 30 MG ONE TABLET
     Dates: start: 201204
  2. VALPRESSION [Concomitant]
     Active Substance: VALSARTAN
     Dosage: 80 MG ONE TABLET
     Dates: start: 201204
  3. SIVASTIN [Concomitant]
     Active Substance: SIMVASTATIN
     Dosage: 40 MG ONE TABLET
     Dates: start: 201204
  4. GABAPENTIN. [Concomitant]
     Active Substance: GABAPENTIN
     Dosage: 1 DF, TID
     Dates: start: 201204
  5. JANUMET [Suspect]
     Active Substance: METFORMIN HYDROCHLORIDE\SITAGLIPTIN PHOSPHATE
     Indication: TYPE 2 DIABETES MELLITUS
     Dosage: 1 DF, BID
     Route: 048
     Dates: start: 20121011, end: 201805

REACTIONS (2)
  - Pancreatitis acute [Recovered/Resolved]
  - Cholangitis [Recovered/Resolved]

NARRATIVE: CASE EVENT DATE: 201805
